FAERS Safety Report 12633530 (Version 1)
Quarter: 2016Q3

REPORT INFORMATION
  Report Type: Spontaneous
  Country: JP (occurrence: JP)
  Receive Date: 20160808
  Receipt Date: 20160808
  Transmission Date: 20161109
  Serious: Yes (Hospitalization)
  Sender: FDA-Public Use
  Company Number: JP-BAYER-2016-146767

PATIENT
  Age: 37 Year
  Sex: Female

DRUGS (1)
  1. ACETYLSALICYLIC ACID({=100 MG) [Suspect]
     Active Substance: ASPIRIN
     Dosage: UNK
     Route: 048

REACTIONS (4)
  - Nonreassuring foetal heart rate pattern [None]
  - Exposure during pregnancy [None]
  - Platelet aggregation decreased [None]
  - Premature rupture of membranes [None]
